FAERS Safety Report 5718504-8 (Version None)
Quarter: 2008Q2

REPORT INFORMATION
  Report Type: 
  Country: None (occurrence: None)
  Receive Date: 20080425
  Receipt Date: 20080411
  Transmission Date: 20081010
  Serious: Yes (Hospitalization)
  Sender: FDA-Public Use
  Company Number: JP-GENENTECH-259551

PATIENT
  Sex: Female

DRUGS (12)
  1. TRASTUZUMAB [Suspect]
     Indication: BREAST CANCER METASTATIC
     Dosage: 186 MG, QD
     Route: 042
     Dates: start: 20070319
  2. TAXOTERE [Suspect]
     Indication: BREAST CANCER METASTATIC
     Dosage: 85 MG, Q3W
     Route: 042
     Dates: start: 20070329
  3. DESYREL [Concomitant]
     Indication: DRUG USE FOR UNKNOWN INDICATION
  4. SEPAZON [Concomitant]
     Indication: DRUG USE FOR UNKNOWN INDICATION
  5. ROHYPNOL [Concomitant]
     Indication: DRUG USE FOR UNKNOWN INDICATION
  6. TAGAMET [Concomitant]
     Indication: DRUG USE FOR UNKNOWN INDICATION
  7. DOXAZOSIN MESYLATE [Concomitant]
     Indication: DRUG USE FOR UNKNOWN INDICATION
  8. NORVASC [Concomitant]
     Indication: DRUG USE FOR UNKNOWN INDICATION
  9. CALONAL [Concomitant]
     Indication: DRUG USE FOR UNKNOWN INDICATION
  10. LENDORMIN [Concomitant]
     Indication: DRUG USE FOR UNKNOWN INDICATION
     Dates: start: 20070510
  11. DECADRON [Concomitant]
     Indication: DRUG USE FOR UNKNOWN INDICATION
     Dates: start: 20070731
  12. DEPAS [Concomitant]
     Indication: DRUG USE FOR UNKNOWN INDICATION
     Dates: start: 20070811

REACTIONS (1)
  - ENTEROCOLITIS [None]
